FAERS Safety Report 8011038-X (Version None)
Quarter: 2011Q4

REPORT INFORMATION
  Report Type: 
  Country: None (occurrence: None)
  Receive Date: 20111228
  Receipt Date: 20111219
  Transmission Date: 20120403
  Serious: Yes (Life-Threatening, Hospitalization, Other)
  Sender: FDA-Public Use
  Company Number: DK-ELI_LILLY_AND_COMPANY-DK201109006755

PATIENT
  Sex: Female
  Weight: 39.456 kg

DRUGS (4)
  1. CANNABIS [Concomitant]
     Dosage: UNK, QD
  2. METHADONE HCL [Concomitant]
     Indication: DRUG DEPENDENCE
     Dosage: 90 MG, QD
  3. ZYPREXA [Suspect]
     Indication: DEPRESSION
     Dosage: 25 MG, QD
     Route: 048
     Dates: start: 20070516
  4. DIAZEPAM [Concomitant]
     Indication: DRUG DEPENDENCE
     Dosage: 10-20 MG, QD

REACTIONS (5)
  - MATERNAL EXPOSURE DURING PREGNANCY [None]
  - ABORTION SPONTANEOUS [None]
  - OFF LABEL USE [None]
  - PREMATURE SEPARATION OF PLACENTA [None]
  - OVERDOSE [None]
